FAERS Safety Report 23869074 (Version 1)
Quarter: 2024Q2

REPORT INFORMATION
  Report Type: Spontaneous
  Country: US (occurrence: None)
  Receive Date: 20240516
  Receipt Date: 20240516
  Transmission Date: 20240716
  Serious: No
  Sender: FDA-Public Use
  Company Number: None

PATIENT
  Age: 98 Year
  Sex: Male
  Weight: 82.55 kg

DRUGS (2)
  1. CEFEPIME [Suspect]
     Active Substance: CEFEPIME HYDROCHLORIDE
     Indication: Pseudomonas infection
     Dosage: FREQUENCY : TWICE A DAY;?
     Route: 058
     Dates: start: 20240503, end: 20240506
  2. CEFEPIME [Suspect]
     Active Substance: CEFEPIME HYDROCHLORIDE
     Indication: Urinary tract infection

REACTIONS (4)
  - Somnolence [None]
  - Headache [None]
  - Tremor [None]
  - Confusional state [None]

NARRATIVE: CASE EVENT DATE: 20240506
